FAERS Safety Report 15436297 (Version 1)
Quarter: 2018Q3

REPORT INFORMATION
  Report Type: Spontaneous
  Country: US (occurrence: US)
  Receive Date: 20180924
  Receipt Date: 20180924
  Transmission Date: 20181010
  Serious: No
  Sender: FDA-Public Use
  Company Number: None

PATIENT
  Age: 55 Year
  Sex: Female
  Weight: 46.35 kg

DRUGS (1)
  1. VIVITROL [Suspect]
     Active Substance: NALTREXONE
     Indication: ALCOHOLISM
     Dosage: ?          OTHER FREQUENCY:EVERY 28 DAYS;?
     Dates: start: 20180918, end: 20180918

REACTIONS (2)
  - Wrong technique in product usage process [None]
  - Incorrect route of drug administration [None]

NARRATIVE: CASE EVENT DATE: 20180918
